FAERS Safety Report 4429355-9 (Version None)
Quarter: 2004Q3

REPORT INFORMATION
  Report Type: 
  Country: None (occurrence: None)
  Receive Date: 20040816
  Receipt Date: 20040810
  Transmission Date: 20050211
  Serious: Yes (Hospitalization)
  Sender: FDA-Public Use
  Company Number: 2004-BP-05656RO

PATIENT
  Age: 61 Year
  Sex: Female

DRUGS (4)
  1. LEUCOVORIN CALCIUM [Suspect]
     Indication: RECTAL CANCER
     Dosage: 75 MG QD (NR), PO (SEE IMAGE)
     Route: 048
     Dates: start: 20040525, end: 20040531
  2. UFT [Suspect]
     Indication: RECTAL CANCER
     Dosage: 400 MG QD (100 MG); PO (SEE IMAGE)
     Route: 048
     Dates: start: 20040525, end: 20040531
  3. TANNALBIN (ALBUMIN TANNATE) [Concomitant]
  4. ALUMINUM MAGNESIUM SILICATE (ALUMINIUM MAGNESIUM SILICATE) [Concomitant]

REACTIONS (15)
  - ALANINE AMINOTRANSFERASE INCREASED [None]
  - ASPARTATE AMINOTRANSFERASE INCREASED [None]
  - BLOOD ALKALINE PHOSPHATASE INCREASED [None]
  - BLOOD BILIRUBIN INCREASED [None]
  - DECREASED APPETITE [None]
  - DIARRHOEA [None]
  - GAMMA-GLUTAMYLTRANSFERASE INCREASED [None]
  - HEADACHE [None]
  - JAUNDICE [None]
  - LISTLESS [None]
  - NAUSEA [None]
  - NEOPLASM RECURRENCE [None]
  - OCULAR ICTERUS [None]
  - RASH [None]
  - VOMITING [None]
